FAERS Safety Report 11089327 (Version 1)
Quarter: 2015Q2

REPORT INFORMATION
  Report Type: Spontaneous
  Country: IN (occurrence: IN)
  Receive Date: 20150505
  Receipt Date: 20150505
  Transmission Date: 20150821
  Serious: Yes (Other)
  Sender: FDA-Public Use
  Company Number: IN-AUROBINDO-AUR-APL-2015-03979

PATIENT
  Age: 42 Year
  Sex: Male

DRUGS (1)
  1. QUETIAPINE 300MG [Suspect]
     Active Substance: QUETIAPINE
     Indication: BIPOLAR I DISORDER
     Route: 065

REACTIONS (2)
  - Brain stem stroke [Unknown]
  - Brain stem ischaemia [Unknown]
